FAERS Safety Report 19327322 (Version 4)
Quarter: 2025Q3

REPORT INFORMATION
  Report Type: Report from Study
  Country: US (occurrence: US)
  Receive Date: 20210528
  Receipt Date: 20250710
  Transmission Date: 20251020
  Serious: Yes (Hospitalization)
  Sender: JAZZ
  Company Number: US-GW PHARMA-202105USGW02553

PATIENT
  Sex: Male

DRUGS (2)
  1. EPIDIOLEX [Suspect]
     Active Substance: CANNABIDIOL
     Indication: Lennox-Gastaut syndrome
     Dosage: 220 MILLIGRAM, BID (DOSE INCREASED TO 270 MG, BID BUT NOT YET SHIPPED)
     Route: 058
     Dates: start: 201908
  2. EPIDIOLEX [Suspect]
     Active Substance: CANNABIDIOL
     Route: 048
     Dates: start: 20220323

REACTIONS (3)
  - Hospitalisation [Unknown]
  - Seizure [Unknown]
  - Incorrect route of product administration [Unknown]
